FAERS Safety Report 4445967-0 (Version None)
Quarter: 2004Q3

REPORT INFORMATION
  Report Type: 
  Country: None (occurrence: None)
  Receive Date: 20040907
  Receipt Date: 20040825
  Transmission Date: 20050211
  Serious: Yes (Life-Threatening)
  Sender: FDA-Public Use
  Company Number: LTR 01-04

PATIENT
  Age: 17 Year
  Sex: Male
  Weight: 73 kg

DRUGS (6)
  1. SODIUM CHLORIDE [Suspect]
     Indication: CEREBRAL DISORDER
     Dosage: IRRIGATION
  2. GLYCOPYRROLATE [Concomitant]
  3. DIAZEPAM [Concomitant]
  4. PROPOFOL [Concomitant]
  5. MEPERIDINE HCL [Concomitant]
  6. PANCURONIUM [Concomitant]

REACTIONS (2)
  - BRADYCARDIA [None]
  - SINUS ARREST [None]
